FAERS Safety Report 7358866-1 (Version None)
Quarter: 2011Q1

REPORT INFORMATION
  Report Type: 
  Country: None (occurrence: None)
  Receive Date: 20110317
  Receipt Date: 20110311
  Transmission Date: 20110831
  Serious: Yes (Other)
  Sender: FDA-Public Use
  Company Number: B0706128A

PATIENT
  Age: 60 Year
  Sex: Female

DRUGS (1)
  1. AMOXIL [Suspect]
     Indication: DENTAL DISORDER PROPHYLAXIS
     Dosage: 1000MG PER DAY
     Route: 048
     Dates: start: 20110311, end: 20110311

REACTIONS (4)
  - OROPHARYNGEAL SWELLING [None]
  - DYSPHAGIA [None]
  - ERYTHEMA [None]
  - BURNING SENSATION [None]
